FAERS Safety Report 8229730-0 (Version None)
Quarter: 2012Q1

REPORT INFORMATION
  Report Type: 
  Country: None (occurrence: None)
  Receive Date: 20120322
  Receipt Date: 20120320
  Transmission Date: 20120608
  Serious: Yes (Other)
  Sender: FDA-Public Use
  Company Number: ES-MERCK-1203ESP00045

PATIENT

DRUGS (1)
  1. CANCIDAS [Suspect]
     Route: 065
     Dates: start: 20080101

REACTIONS (1)
  - HEPATOTOXICITY [None]
